FAERS Safety Report 15863403 (Version 1)
Quarter: 2018Q4

REPORT INFORMATION
  Report Type: Spontaneous
  Country: US (occurrence: US)
  Receive Date: 20181228
  Receipt Date: 20181228
  Transmission Date: 20190205
  Serious: Yes (Hospitalization)
  Sender: FDA-Public Use
  Company Number: None

PATIENT
  Age: 65 Year
  Sex: Male
  Weight: 73 kg

DRUGS (2)
  1. LITHIUM. [Suspect]
     Active Substance: LITHIUM
     Indication: BIPOLAR I DISORDER
     Route: 048
     Dates: start: 20100506
  2. VARENICLINE [Suspect]
     Active Substance: VARENICLINE
     Indication: EX-TOBACCO USER
     Route: 048
     Dates: start: 20180809, end: 20181017

REACTIONS (10)
  - Confusional state [None]
  - Mental status changes [None]
  - Antipsychotic drug level increased [None]
  - Vomiting [None]
  - Hyponatraemia [None]
  - Abnormal dreams [None]
  - Weight decreased [None]
  - Nausea [None]
  - Irritability [None]
  - Hypovolaemia [None]

NARRATIVE: CASE EVENT DATE: 20181019
